FAERS Safety Report 24277742 (Version 2)
Quarter: 2024Q4

REPORT INFORMATION
  Report Type: Spontaneous
  Country: JP (occurrence: JP)
  Receive Date: 20240903
  Receipt Date: 20241113
  Transmission Date: 20250115
  Serious: No
  Sender: MYLAN
  Company Number: JP-MYLANLABS-2024M1078929

PATIENT

DRUGS (1)
  1. EPIPEN [Suspect]
     Active Substance: EPINEPHRINE
     Indication: Product used for unknown indication
     Dosage: UNK
     Route: 065

REACTIONS (1)
  - Device leakage [Unknown]
